FAERS Safety Report 5523472-8 (Version None)
Quarter: 2007Q4

REPORT INFORMATION
  Report Type: 
  Country: None (occurrence: None)
  Receive Date: 20071121
  Receipt Date: 20071112
  Transmission Date: 20080405
  Serious: Yes (Other)
  Sender: FDA-Public Use
  Company Number: US-AMGEN-STX252197

PATIENT
  Sex: Male

DRUGS (2)
  1. ENBREL [Suspect]
     Indication: RHEUMATOID ARTHRITIS
     Route: 058
     Dates: start: 20070520
  2. ARAVA [Concomitant]
     Route: 048
     Dates: start: 19970101

REACTIONS (6)
  - ARTHRALGIA [None]
  - CARDIAC INFECTION [None]
  - HAEMORRHOIDS [None]
  - JOINT STIFFNESS [None]
  - PROSTATE INFECTION [None]
  - TACHYCARDIA [None]
